FAERS Safety Report 21756580 (Version 5)
Quarter: 2024Q2

REPORT INFORMATION
  Report Type: Report from Study
  Country: FR (occurrence: None)
  Receive Date: 20221220
  Receipt Date: 20240415
  Transmission Date: 20240715
  Serious: Yes (Death)
  Sender: FDA-Public Use
  Company Number: 2022A406390

PATIENT
  Age: 729 Month
  Sex: Female
  Weight: 67 kg

DRUGS (1)
  1. EVUSHELD [Suspect]
     Active Substance: CILGAVIMAB\TIXAGEVIMAB
     Indication: COVID-19 prophylaxis
     Dosage: ONCE/SINGLE ADMINISTRATION, 300 MG (TIXAGEVIMAB 150 MG/ CILGAVIMAB 150 MG) ? 1ST DOSE
     Route: 030
     Dates: start: 20220201, end: 20220201

REACTIONS (2)
  - Sudden death [Fatal]
  - Product use issue [Unknown]

NARRATIVE: CASE EVENT DATE: 20220201
